FAERS Safety Report 6332434-2 (Version None)
Quarter: 2009Q3

REPORT INFORMATION
  Report Type: 
  Country: None (occurrence: None)
  Receive Date: 20090828
  Receipt Date: 20090826
  Transmission Date: 20100115
  Serious: Yes (Other)
  Sender: FDA-Public Use
  Company Number: US-AMGEN-US354322

PATIENT
  Sex: Female
  Weight: 106 kg

DRUGS (5)
  1. NPLATE [Suspect]
     Indication: IDIOPATHIC THROMBOCYTOPENIC PURPURA
     Dates: start: 20090220, end: 20090516
  2. ATARAX [Concomitant]
     Dates: start: 20070702
  3. VISTARIL [Concomitant]
     Dates: start: 20080509
  4. TYLENOL (CAPLET) [Concomitant]
     Route: 048
     Dates: start: 20070927
  5. BENADRYL [Concomitant]
     Route: 042
     Dates: start: 20080314

REACTIONS (1)
  - PANCREATITIS RELAPSING [None]
